FAERS Safety Report 6936194-3 (Version None)
Quarter: 2010Q3

REPORT INFORMATION
  Report Type: 
  Country: None (occurrence: None)
  Receive Date: 20100823
  Receipt Date: 20100811
  Transmission Date: 20110219
  Serious: Yes (Hospitalization, Other)
  Sender: FDA-Public Use
  Company Number: SE-PFIZER INC-2009290901

PATIENT
  Age: 38 Year
  Sex: Female

DRUGS (8)
  1. LYRICA [Suspect]
     Indication: BIPOLAR I DISORDER
     Dosage: 300 MG, 1X/DAY
     Route: 048
     Dates: end: 20090802
  2. LAMOTRIGINE [Suspect]
     Dosage: 200 MG, 1X/DAY
     Route: 048
     Dates: start: 20090101, end: 20090730
  3. BUPROPION HYDROCHLORIDE [Suspect]
     Indication: BIPOLAR I DISORDER
     Dosage: 300 MG, 1X/DAY
     Route: 048
     Dates: start: 20090701, end: 20090730
  4. ZOPICLONE [Concomitant]
     Dosage: UNK
  5. SERTRALINE [Concomitant]
     Dosage: UNK
  6. LERGIGAN [Concomitant]
     Dosage: 25 MG, UNK
  7. NOZINAN [Concomitant]
     Dosage: 25 MG, UNK
  8. THERALEN [Concomitant]
     Dosage: UNK

REACTIONS (2)
  - RHABDOMYOLYSIS [None]
  - TRANSAMINASES INCREASED [None]
